FAERS Safety Report 25049065 (Version 3)
Quarter: 2025Q3

REPORT INFORMATION
  Report Type: Spontaneous
  Country: EU (occurrence: EU)
  Receive Date: 20250307
  Receipt Date: 20250814
  Transmission Date: 20251020
  Serious: Yes (Hospitalization, Other)
  Sender: AUROBINDO
  Company Number: EU-MYLANLABS-2023M1017684

PATIENT
  Age: 70 Year
  Sex: Male

DRUGS (2)
  1. PERINDOPRIL [Suspect]
     Active Substance: PERINDOPRIL
     Indication: Product used for unknown indication
     Route: 065
  2. RIVAROXABAN [Suspect]
     Active Substance: RIVAROXABAN
     Indication: Product used for unknown indication
     Dosage: 20 MILLIGRAM, ONCE A DAY
     Route: 065

REACTIONS (20)
  - Azotaemia [Unknown]
  - Anticoagulant-related nephropathy [Recovered/Resolved]
  - Acute kidney injury [Recovered/Resolved]
  - Glomerulosclerosis [Unknown]
  - Nephropathy [Unknown]
  - Renal tubular atrophy [Unknown]
  - Kidney fibrosis [Unknown]
  - Renal failure [Recovered/Resolved]
  - Decreased appetite [Unknown]
  - Nausea [Recovered/Resolved]
  - Vomiting [Recovered/Resolved]
  - Urine output decreased [Recovered/Resolved]
  - Haematuria [Recovered/Resolved]
  - Oliguria [Recovered/Resolved]
  - Proteinuria [Recovered/Resolved]
  - Acidosis [Recovered/Resolved]
  - Pyuria [Recovered/Resolved]
  - Fatigue [Recovered/Resolved]
  - Kidney enlargement [Recovered/Resolved]
  - Haemorrhage [Recovered/Resolved]
